FAERS Safety Report 20253198 (Version 1)
Quarter: 2021Q4

REPORT INFORMATION
  Report Type: Spontaneous
  Country: CO (occurrence: CO)
  Receive Date: 20211229
  Receipt Date: 20211229
  Transmission Date: 20220304
  Serious: Yes (Life-Threatening, Hospitalization, Other)
  Sender: FDA-Public Use
  Company Number: None

PATIENT
  Age: 45 Year
  Sex: Female

DRUGS (6)
  1. LEVONORGESTREL [Suspect]
     Active Substance: LEVONORGESTREL
     Indication: Oral contraception
     Dosage: 0.15 MILLIGRAM, QD
     Route: 048
  2. LEVONORGESTREL [Suspect]
     Active Substance: LEVONORGESTREL
     Indication: Hormonal contraception
  3. ESTRADIOL [Suspect]
     Active Substance: ESTRADIOL
     Indication: Oral contraception
     Dosage: 0.03 MILLIGRAM, QD
     Route: 048
  4. ESTRADIOL [Suspect]
     Active Substance: ESTRADIOL
     Indication: Hormonal contraception
  5. AMPICILLIN + SULBACTAM [Concomitant]
     Indication: Evidence based treatment
     Dosage: UNK
     Route: 065
  6. AMPICILLIN + SULBACTAM [Concomitant]
     Indication: Antibiotic therapy

REACTIONS (3)
  - Obstructive shock [Recovered/Resolved]
  - Right ventricular dysfunction [Recovered/Resolved]
  - Pulmonary embolism [Recovered/Resolved]
